FAERS Safety Report 21396776 (Version 1)
Quarter: 2022Q3

REPORT INFORMATION
  Report Type: Spontaneous
  Country: CN (occurrence: None)
  Receive Date: 20220930
  Receipt Date: 20220930
  Transmission Date: 20221027
  Serious: Yes (Hospitalization)
  Sender: FDA-Public Use
  Company Number: 2022A332836

PATIENT
  Age: 21550 Day
  Sex: Female
  Weight: 63 kg

DRUGS (7)
  1. TICAGRELOR [Suspect]
     Active Substance: TICAGRELOR
     Indication: Arteriosclerosis
     Route: 048
     Dates: start: 20220906, end: 20220908
  2. TICAGRELOR [Suspect]
     Active Substance: TICAGRELOR
     Indication: Platelet aggregation abnormal
     Route: 048
     Dates: start: 20220906, end: 20220908
  3. NICORANDIL [Concomitant]
     Active Substance: NICORANDIL
     Indication: Blood disorder
     Route: 048
     Dates: start: 20220905, end: 20220911
  4. ISOSORBIDE DINITRATE [Concomitant]
     Active Substance: ISOSORBIDE DINITRATE
     Indication: Coronary artery disease
     Route: 048
     Dates: start: 20220905, end: 20220911
  5. CLOPIDOGREL BISULFATE [Concomitant]
     Active Substance: CLOPIDOGREL BISULFATE
     Indication: Platelet aggregation abnormal
     Route: 048
     Dates: start: 20220905, end: 20220906
  6. ASPIRIN [Concomitant]
     Active Substance: ASPIRIN
     Indication: Platelet aggregation abnormal
     Route: 048
     Dates: start: 20220905, end: 20220911
  7. ATORVASTATIN CALCIUM [Concomitant]
     Active Substance: ATORVASTATIN CALCIUM
     Indication: Lipids abnormal
     Route: 048
     Dates: start: 20220905, end: 20220911

REACTIONS (1)
  - Chest discomfort [Recovered/Resolved]

NARRATIVE: CASE EVENT DATE: 20220907
